FAERS Safety Report 9743234 (Version 1)
Quarter: 2013Q4

REPORT INFORMATION
  Report Type: Spontaneous
  Country: US (occurrence: US)
  Receive Date: 20131210
  Receipt Date: 20131210
  Transmission Date: 20140711
  Serious: No
  Sender: FDA-Public Use
  Company Number: US-GILEAD-2009-0025125

PATIENT
  Age: 61 Year
  Sex: Female

DRUGS (19)
  1. LETAIRIS [Suspect]
     Indication: PULMONARY ARTERIAL HYPERTENSION
     Route: 048
     Dates: start: 20080105
  2. ADCIRCA [Suspect]
     Indication: PULMONARY ARTERIAL HYPERTENSION
     Route: 048
     Dates: start: 20091022
  3. FUROSEMIDE [Concomitant]
  4. METOLAZONE [Concomitant]
  5. LYRICA [Concomitant]
  6. NORTRIPTYLINE [Concomitant]
  7. XANAX [Concomitant]
  8. EXCEDRIN [Concomitant]
  9. DIGITEK [Concomitant]
  10. SIMVASTATIN [Concomitant]
  11. ACYCLOVIR [Concomitant]
  12. DOCUSATE [Concomitant]
  13. DIPYRIDAMOLE [Concomitant]
  14. TYLENOL [Concomitant]
  15. MAGNESIUM [Concomitant]
  16. ALLOPURINOL [Concomitant]
  17. ZANTAC [Concomitant]
  18. POTASSIUM CHLORIDE [Concomitant]
  19. ACAI BERRY [Concomitant]

REACTIONS (2)
  - Weight increased [Not Recovered/Not Resolved]
  - Dyspnoea [Not Recovered/Not Resolved]
